FAERS Safety Report 10407157 (Version 1)
Quarter: 2014Q3

REPORT INFORMATION
  Report Type: Report from Study
  Country: BR (occurrence: BR)
  Receive Date: 20140825
  Receipt Date: 20140825
  Transmission Date: 20150326
  Serious: Yes (Other)
  Sender: FDA-Public Use
  Company Number: BR-GLAXOSMITHKLINE-A1086361A

PATIENT
  Sex: Male
  Weight: 70 kg

DRUGS (7)
  1. ASPIRINA [Concomitant]
     Active Substance: ASPIRIN
  2. NEUTROFER [Concomitant]
     Active Substance: FERROUS BISGLYCINATE
  3. PANTOPRAZOLE [Concomitant]
     Active Substance: PANTOPRAZOLE SODIUM
  4. CONCOR [Concomitant]
     Active Substance: BISOPROLOL FUMARATE
  5. AVODART [Suspect]
     Active Substance: DUTASTERIDE
     Indication: BENIGN PROSTATIC HYPERPLASIA
     Dosage: .5MG SEE DOSAGE TEXT
     Route: 048
  6. CRESTOR [Concomitant]
     Active Substance: ROSUVASTATIN CALCIUM
  7. CENTRUM SILVER [Concomitant]
     Active Substance: VITAMINS

REACTIONS (3)
  - Arterial therapeutic procedure [Unknown]
  - Coronary artery bypass [Unknown]
  - Off label use [Not Recovered/Not Resolved]
